FAERS Safety Report 15288656 (Version 1)
Quarter: 2018Q3

REPORT INFORMATION
  Report Type: Spontaneous
  Country: CH (occurrence: CH)
  Receive Date: 20180817
  Receipt Date: 20180817
  Transmission Date: 20181010
  Serious: Yes (Hospitalization)
  Sender: FDA-Public Use
  Company Number: CH-BAYER-2018-149341

PATIENT
  Age: 83 Year
  Sex: Female
  Weight: 50 kg

DRUGS (34)
  1. TOREM [Suspect]
     Active Substance: TORSEMIDE
     Dosage: 30 MG, OM
  2. CARVEDILOL SANDOZ [Suspect]
     Active Substance: CARVEDILOL
     Dosage: 12.5 MG, BID
     Route: 048
     Dates: start: 20180718
  3. DAFALGAN [Concomitant]
     Active Substance: ACETAMINOPHEN
     Indication: PYREXIA
     Dosage: 1 G, QD
     Route: 048
     Dates: start: 20180709, end: 20180709
  4. AMLODIPINE BESILATE [Concomitant]
     Active Substance: AMLODIPINE BESYLATE
     Dosage: 5 MG, QD
     Route: 048
     Dates: end: 20180707
  5. LEXOTANIL [Concomitant]
     Active Substance: BROMAZEPAM
     Dosage: 2.5 MG, HS
     Route: 048
  6. ATORVASTATIN CALCIUM. [Concomitant]
     Active Substance: ATORVASTATIN CALCIUM
     Dosage: 40 MG, HS
     Route: 048
     Dates: start: 20180716
  7. FAKTU [CINCHOCAINE HYDROCHLORIDE,POLICRESULEN] [Concomitant]
     Dosage: UNK
  8. TOREM [Suspect]
     Active Substance: TORSEMIDE
     Dosage: 10 MG, OM
     Route: 048
     Dates: start: 20180712
  9. NOVALGIN (METAMIZOLE SODIUM) [Concomitant]
     Active Substance: METAMIZOLE SODIUM
     Dosage: 20 GTT, PRN, UP TO 4 TIMES DAILY
     Route: 048
     Dates: end: 20180707
  10. LASIX [Concomitant]
     Active Substance: FUROSEMIDE
     Dosage: 1 DF, QD
     Route: 040
     Dates: start: 20180710, end: 20180711
  11. ALDACTONE A [Suspect]
     Active Substance: SPIRONOLACTONE
     Dosage: 25 MG, OM
     Route: 048
     Dates: start: 20180723
  12. TOREM [Suspect]
     Active Substance: TORSEMIDE
     Dosage: 2.5 MG, OM
     Route: 048
     Dates: end: 20180708
  13. CARVEDILOL SANDOZ [Suspect]
     Active Substance: CARVEDILOL
     Dosage: 12.5 MG, BID
     Route: 048
     Dates: end: 20180707
  14. FRAGMIN [Concomitant]
     Active Substance: DALTEPARIN SODIUM
     Dosage: 5000 IU, QD
     Route: 058
     Dates: start: 20180709
  15. PROCTO?GLYVENOL [Concomitant]
     Active Substance: LIDOCAINE HYDROCHLORIDE\TRIBENOSIDE
     Dosage: UNK
  16. COVERSUM [Suspect]
     Active Substance: PERINDOPRIL
     Dosage: 2.5 MG, OM
     Route: 048
     Dates: start: 20180720, end: 20180726
  17. DAFALGAN [Concomitant]
     Active Substance: ACETAMINOPHEN
     Indication: PYREXIA
     Dosage: 1 G, QD
     Route: 048
     Dates: start: 20180714, end: 20180714
  18. OESTRO?GYNAEDRON [Concomitant]
     Dosage: 1 DF, OW
  19. ROCEPHIN [Suspect]
     Active Substance: CEFTRIAXONE SODIUM
     Indication: UROSEPSIS
     Dosage: 2 G, QD
     Route: 041
     Dates: start: 20180709, end: 20180722
  20. METOLAZONE. [Concomitant]
     Active Substance: METOLAZONE
     Dosage: 2.5 MG, QD
     Route: 048
     Dates: start: 20180722, end: 20180722
  21. AMLODIPINE BESILATE [Concomitant]
     Active Substance: AMLODIPINE BESYLATE
     Dosage: 5 MG, QD
     Route: 048
     Dates: start: 20180712, end: 20180719
  22. INDIVINA [Concomitant]
     Dosage: UNK
     Dates: end: 20180708
  23. DAFALGAN [Concomitant]
     Active Substance: ACETAMINOPHEN
     Indication: PYREXIA
     Dosage: 1 G, QD
     Route: 048
     Dates: start: 20180725, end: 20180730
  24. PROCTO?GLYVENOL [Concomitant]
     Active Substance: LIDOCAINE HYDROCHLORIDE\TRIBENOSIDE
     Dosage: 800 MG, BID
  25. MEBUCAINE [OXYBUPROCAINE HYDROCHLORIDE,TYROTHRICIN] [Concomitant]
     Indication: OROPHARYNGEAL PAIN
  26. AMLODIPIN [Concomitant]
     Active Substance: AMLODIPINE BESYLATE
     Dosage: 5 MG, UNK
     Dates: start: 20180712, end: 20180718
  27. ASPIRIN CARDIO 100 MG [Suspect]
     Active Substance: ASPIRIN
     Dosage: 100 MG, OM
     Route: 048
     Dates: start: 20180708
  28. ALDACTONE A [Concomitant]
     Active Substance: SPIRONOLACTONE
     Dosage: 25 MG, QD
     Route: 048
     Dates: start: 20180723
  29. PIPERACILLIN AND TAZOBACTAM [Concomitant]
     Active Substance: PIPERACILLIN SODIUM\TAZOBACTAM SODIUM
     Dosage: 4.5 G, TID
     Route: 041
     Dates: start: 20180725
  30. KCL RETARD ZYMA [Concomitant]
     Active Substance: POTASSIUM CHLORIDE
     Dosage: 10 MMOL, OM
     Route: 048
     Dates: end: 20180722
  31. VITAMIN D3 STREULI [Concomitant]
     Active Substance: CHOLECALCIFEROL
     Dosage: 1000 IU, OM
     Route: 048
  32. FAKTU [CINCHOCAINE HYDROCHLORIDE,POLICRESULEN] [Concomitant]
     Dosage: UNK
  33. QUETIAPINE FUMARATE. [Suspect]
     Active Substance: QUETIAPINE FUMARATE
     Dosage: 5 MG, QD
     Route: 048
     Dates: start: 20180716, end: 20180722
  34. AMLODIPIN [Concomitant]
     Active Substance: AMLODIPINE BESYLATE
     Dosage: 5 MG, UNK
     Dates: end: 20180707

REACTIONS (1)
  - Agranulocytosis [Not Recovered/Not Resolved]

NARRATIVE: CASE EVENT DATE: 20180726
